FAERS Safety Report 4938407-6 (Version None)
Quarter: 2006Q1

REPORT INFORMATION
  Report Type: 
  Country: None (occurrence: None)
  Receive Date: 20060302
  Receipt Date: 20060109
  Transmission Date: 20060701
  Serious: Yes (Other)
  Sender: FDA-Public Use
  Company Number: PAR_0520_2006

PATIENT
  Age: 66 Year
  Sex: Female

DRUGS (5)
  1. ISOPTIN SR [Suspect]
     Indication: ESSENTIAL HYPERTENSION
     Dosage: 2 DF QDAY PO
     Route: 048
  2. TENORMIN [Suspect]
     Indication: ESSENTIAL HYPERTENSION
     Dosage: 100 MG QDAY PO
     Route: 048
  3. METFORMIN [Concomitant]
  4. BU PREDONIUM [Concomitant]
  5. GLICLAZIDE [Concomitant]

REACTIONS (8)
  - ABDOMINAL PAIN [None]
  - BRADYCARDIA [None]
  - DISCOMFORT [None]
  - DIZZINESS [None]
  - DRUG INTERACTION [None]
  - HYPOTENSION [None]
  - MALAISE [None]
  - NAUSEA [None]
